FAERS Safety Report 23412080 (Version 3)
Quarter: 2024Q2

REPORT INFORMATION
  Report Type: Report from Study
  Country: JP (occurrence: JP)
  Receive Date: 20240117
  Receipt Date: 20240531
  Transmission Date: 20240716
  Serious: Yes (Death)
  Sender: FDA-Public Use
  Company Number: JP-shionogi-202400219_FTR_P_1

PATIENT

DRUGS (6)
  1. FETROJA [Suspect]
     Active Substance: CEFIDEROCOL SULFATE TOSYLATE
     Indication: Pneumonia
     Dosage: 1 G, PRN8
     Route: 041
     Dates: start: 20231227, end: 20240106
  2. CYCLOSPORINE [Concomitant]
     Active Substance: CYCLOSPORINE
     Dosage: UNK
     Route: 065
     Dates: end: 20240105
  3. PREDNISOLONE ACETATE [Concomitant]
     Active Substance: PREDNISOLONE ACETATE
     Dosage: UNK
     Route: 065
     Dates: end: 20240106
  4. TEICOPLANIN [Concomitant]
     Active Substance: TEICOPLANIN
     Indication: Pneumonia
     Dosage: 300 MG, QD
     Route: 065
     Dates: end: 20240105
  5. CANCIDAS [Concomitant]
     Active Substance: CASPOFUNGIN ACETATE
     Indication: Pneumonia
     Dosage: 50 MG, QD
     Route: 065
     Dates: end: 20240105
  6. NOXAFIL [Concomitant]
     Active Substance: POSACONAZOLE
     Indication: Pneumonia
     Dosage: 300 MG, QD
     Route: 065
     Dates: end: 20240106

REACTIONS (2)
  - Pulmonary alveolar haemorrhage [Fatal]
  - Infection [Fatal]

NARRATIVE: CASE EVENT DATE: 20240106
